FAERS Safety Report 7962194-0 (Version None)
Quarter: 2011Q4

REPORT INFORMATION
  Report Type: 
  Country: None (occurrence: None)
  Receive Date: 20111207
  Receipt Date: 20111126
  Transmission Date: 20120403
  Serious: Yes (Other)
  Sender: FDA-Public Use
  Company Number: PHHY2011MX104533

PATIENT
  Sex: Female

DRUGS (6)
  1. CILOSTAZOL [Concomitant]
     Dosage: UNK UKN, QD
  2. ALPRAZOLAM [Concomitant]
     Indication: SLEEP DISORDER
     Dosage: UNK UKN, QD
  3. PLAVIX [Concomitant]
     Dosage: UNK UKN, QD
     Dates: start: 20110501
  4. PROPAFENONE HCL [Concomitant]
     Dosage: UNK UKN, QD
  5. EXFORGE HCT [Suspect]
     Indication: HYPERTENSION
     Dosage: 1 DF, (160/5/12.5MG) DAILY
     Dates: start: 20110201
  6. LEVOTHYROXINE SODIUM [Concomitant]
     Dosage: UNK UKN, QD

REACTIONS (7)
  - FALL [None]
  - EAR INJURY [None]
  - ABASIA [None]
  - FACE INJURY [None]
  - BALANCE DISORDER [None]
  - FACIAL BONES FRACTURE [None]
  - CEREBROVASCULAR ACCIDENT [None]
